FAERS Safety Report 4294585-6 (Version None)
Quarter: 2004Q1

REPORT INFORMATION
  Report Type: 
  Country: None (occurrence: None)
  Receive Date: 20040211
  Receipt Date: 20040129
  Transmission Date: 20041129
  Serious: No
  Sender: FDA-Public Use
  Company Number: 04H-163-0249490-00

PATIENT

DRUGS (2)
  1. SODIUM CHLORIDE 0.9% INJECTION IN FLEXIBLE CONTAINERS [Suspect]
     Indication: FLUSHING
     Dosage: ONCE, INTRAVENOUS
     Route: 042
  2. HEPARIN LOCK FLUSH SOLUTION + NACL INJECTION (HEPARIN SODIUM/SODIUM CH [Suspect]
     Indication: FLUSHING
     Dosage: ONCE, INTRAVENOUS
     Route: 042

REACTIONS (7)
  - ABDOMINAL PAIN [None]
  - ANAPHYLACTOID REACTION [None]
  - DYSPNOEA [None]
  - ERYTHEMA [None]
  - HYPOTENSION [None]
  - NAUSEA [None]
  - SWELLING FACE [None]
